FAERS Safety Report 7716594-4 (Version None)
Quarter: 2011Q3

REPORT INFORMATION
  Report Type: 
  Country: None (occurrence: None)
  Receive Date: 20110829
  Receipt Date: 20110408
  Transmission Date: 20111222
  Serious: No
  Sender: FDA-Public Use
  Company Number: US-GLAXOSMITHKLINE-A0922105A

PATIENT
  Age: 48 Year
  Sex: Male

DRUGS (2)
  1. BECONASE [Suspect]
     Indication: ILL-DEFINED DISORDER
     Dosage: 2PUFF TWICE PER DAY
     Route: 045
     Dates: start: 20110401, end: 20110402
  2. AUGMENTIN '125' [Concomitant]

REACTIONS (1)
  - EPISTAXIS [None]
